FAERS Safety Report 8088713-4 (Version None)
Quarter: 2012Q1

REPORT INFORMATION
  Report Type: 
  Country: None (occurrence: None)
  Receive Date: 20120128
  Receipt Date: 20110607
  Transmission Date: 20120608
  Serious: No
  Sender: FDA-Public Use
  Company Number: US-ABBOTT-11P-163-0730894-00

PATIENT
  Age: 20 Year
  Sex: Male

DRUGS (3)
  1. HUMIRA [Suspect]
     Indication: CROHN'S DISEASE
     Dosage: LAST DOSE 80MG, NEXT DOSE 40MG
     Dates: start: 20110518
  2. CLARITIN [Concomitant]
     Indication: SEASONAL ALLERGY
  3. PREDNISONE TAB [Concomitant]
     Indication: PRODUCT USED FOR UNKNOWN INDICATION
     Dosage: 20MG DAILY TAPERING 5MG EVERY WEEK

REACTIONS (1)
  - CONTUSION [None]
